FAERS Safety Report 13296822 (Version 1)
Quarter: 2017Q1

REPORT INFORMATION
  Report Type: Spontaneous
  Country: GB (occurrence: GB)
  Receive Date: 20170306
  Receipt Date: 20170306
  Transmission Date: 20170428
  Serious: Yes (Other)
  Sender: FDA-Public Use
  Company Number: GB-ROCHE-1899115

PATIENT
  Age: 17 Year
  Sex: Male

DRUGS (5)
  1. RIBAVIRIN. [Suspect]
     Active Substance: RIBAVIRIN
     Indication: SUBACUTE SCLEROSING PANENCEPHALITIS
     Route: 048
  2. RIBAVIRIN. [Suspect]
     Active Substance: RIBAVIRIN
     Route: 048
  3. RIBAVIRIN. [Suspect]
     Active Substance: RIBAVIRIN
     Indication: SUBACUTE SCLEROSING PANENCEPHALITIS
     Route: 042
  4. WELLFERON [Suspect]
     Active Substance: INTERFERON ALFA-N1
     Indication: SUBACUTE SCLEROSING PANENCEPHALITIS
     Dosage: STARTING AT 100,000 U/ML/DAY, BUILDING UP TO 1 MILLION U/M2/DAY
     Route: 065
  5. INOSIPLEX [Suspect]
     Active Substance: INOSINE PRANOBEX
     Indication: SUBACUTE SCLEROSING PANENCEPHALITIS
     Route: 048

REACTIONS (2)
  - Anaemia [Unknown]
  - Device related infection [Unknown]
